FAERS Safety Report 17399559 (Version 1)
Quarter: 2020Q1

REPORT INFORMATION
  Report Type: Spontaneous
  Country: CN (occurrence: CN)
  Receive Date: 20200211
  Receipt Date: 20200211
  Transmission Date: 20200409
  Serious: Yes (Death, Life-Threatening, Hospitalization, Other)
  Sender: FDA-Public Use
  Company Number: CN-MACLEODS PHARMACEUTICALS US LTD-MAC2020025038

PATIENT

DRUGS (10)
  1. TIGECYCLINE. [Suspect]
     Active Substance: TIGECYCLINE
     Indication: ACINETOBACTER INFECTION
     Dosage: UNK
     Route: 065
     Dates: start: 201707
  2. CILASTATIN/IMIPENEM [Suspect]
     Active Substance: CILASTATIN SODIUM\IMIPENEM
     Indication: PANTOEA AGGLOMERANS INFECTION
     Dosage: UNK
     Route: 065
     Dates: start: 201707
  3. IMIPENEM [Suspect]
     Active Substance: IMIPENEM
     Indication: SEPTIC SHOCK
     Dosage: UNK
     Route: 065
     Dates: start: 20170727
  4. GANCICLOVIR. [Suspect]
     Active Substance: GANCICLOVIR
     Indication: SEPTIC SHOCK
     Dosage: UNK
     Route: 065
     Dates: start: 20170727
  5. NOREPINEPHRINE. [Suspect]
     Active Substance: NOREPINEPHRINE
     Indication: SEPTIC SHOCK
     Dosage: UNK, HIGH DOSE
     Route: 065
     Dates: start: 201708
  6. TIGECYCLINE. [Suspect]
     Active Substance: TIGECYCLINE
     Indication: PANTOEA AGGLOMERANS INFECTION
  7. OSELTAMIVIR [Suspect]
     Active Substance: OSELTAMIVIR
     Indication: SEPTIC SHOCK
     Dosage: UNK, OSELTAMIVIR PHOSPHATE
     Route: 065
     Dates: start: 20170727
  8. CILASTATIN/IMIPENEM [Suspect]
     Active Substance: CILASTATIN SODIUM\IMIPENEM
     Indication: ACINETOBACTER INFECTION
  9. MOXIFLOXACIN. [Suspect]
     Active Substance: MOXIFLOXACIN
     Indication: SEPTIC SHOCK
     Dosage: UNK
     Route: 065
     Dates: start: 20170727
  10. VASOPRESSIN. [Suspect]
     Active Substance: VASOPRESSIN
     Indication: SEPTIC SHOCK
     Dosage: UNK, PITUITARY VASOPRESSIN
     Route: 065
     Dates: start: 201708

REACTIONS (1)
  - Drug ineffective [Fatal]

NARRATIVE: CASE EVENT DATE: 20170727
